FAERS Safety Report 12505278 (Version 1)
Quarter: 2016Q2

REPORT INFORMATION
  Report Type: Spontaneous
  Country: US (occurrence: US)
  Receive Date: 20160628
  Receipt Date: 20160628
  Transmission Date: 20160815
  Serious: Yes (Other)
  Sender: FDA-Public Use
  Company Number: US-BAYER-2016-120444

PATIENT
  Sex: Female
  Weight: 68.93 kg

DRUGS (5)
  1. MIRALAX [Suspect]
     Active Substance: POLYETHYLENE GLYCOL 3350
     Indication: CONSTIPATION
     Dosage: 1 DF, QD
     Route: 048
     Dates: start: 201605, end: 20160617
  2. METAMUCIL [Concomitant]
     Active Substance: PLANTAGO SEED
     Indication: PROPHYLAXIS
     Dosage: UNK
     Dates: start: 201606
  3. MIRALAX [Suspect]
     Active Substance: POLYETHYLENE GLYCOL 3350
     Indication: PROPHYLAXIS
  4. COLACE [Concomitant]
     Active Substance: DOCUSATE SODIUM
     Indication: PROPHYLAXIS
     Dosage: UNK
     Dates: start: 201606
  5. IMODIUM [LOPERAMIDE HYDROCHLORIDE,SIMETICONE] [Concomitant]

REACTIONS (9)
  - Off label use [None]
  - Diarrhoea [Not Recovered/Not Resolved]
  - Product use issue [None]
  - Frequent bowel movements [Not Recovered/Not Resolved]
  - Product use issue [None]
  - Bacterial infection [Not Recovered/Not Resolved]
  - Gastrointestinal haemorrhage [Not Recovered/Not Resolved]
  - Constipation [Not Recovered/Not Resolved]
  - Wrong technique in product usage process [None]

NARRATIVE: CASE EVENT DATE: 201605
